FAERS Safety Report 5192013-X (Version None)
Quarter: 2006Q4

REPORT INFORMATION
  Report Type: 
  Country: None (occurrence: None)
  Receive Date: 20061220
  Receipt Date: 20061205
  Transmission Date: 20070319
  Serious: Yes (Hospitalization)
  Sender: FDA-Public Use
  Company Number: 15325

PATIENT
  Age: 65 Year
  Sex: Male

DRUGS (2)
  1. CARBOPLATIN [Suspect]
     Dosage: 387 MG PER_CYCLE IV
     Route: 042
     Dates: start: 20061016, end: 20061116
  2. ERBITUX [Concomitant]

REACTIONS (4)
  - LUNG INFECTION [None]
  - PANCYTOPENIA [None]
  - PNEUMOCOCCAL INFECTION [None]
  - PULMONARY TOXICITY [None]
